FAERS Safety Report 8344286-X (Version None)
Quarter: 2012Q2

REPORT INFORMATION
  Report Type: 
  Country: None (occurrence: None)
  Receive Date: 20120402
  Receipt Date: 20120117
  Transmission Date: 20120825
  Serious: Yes (Other)
  Sender: FDA-Public Use
  Company Number: 317933USA

PATIENT
  Age: 57 Year
  Sex: Female
  Weight: 59.8748 kg

DRUGS (5)
  1. VENLAFAXINE [Suspect]
     Indication: DEPRESSION
     Dosage: (75 MG)
     Dates: start: 20100701, end: 20100101
  2. NITROFURANTOIN [Concomitant]
  3. VENLAFAXINE HYDROCHLORIDE [Suspect]
     Indication: DEPRESSION
     Dosage: 2X DAY, ORAL
     Route: 048
     Dates: start: 20060101
  4. PANTOPRAZOLE [Concomitant]
  5. PRAVASTATIN [Concomitant]

REACTIONS (2)
  - PSORIATIC ARTHROPATHY [None]
  - FEELING ABNORMAL [None]
